FAERS Safety Report 6433631-8 (Version None)
Quarter: 2009Q4

REPORT INFORMATION
  Report Type: 
  Country: None (occurrence: None)
  Receive Date: 20091106
  Receipt Date: 20091106
  Transmission Date: 20100525
  Serious: Yes (Hospitalization)
  Sender: FDA-Public Use
  Company Number: None

PATIENT
  Age: 61 Year
  Sex: Male

DRUGS (2)
  1. AMIODARONE HCL [Suspect]
     Indication: CORONARY ARTERY BYPASS
     Dosage: 100 MG EVERY DAY PO
     Route: 048
     Dates: start: 20090811, end: 20090819
  2. AMIODARONE HCL [Suspect]
     Indication: POSTOPERATIVE CARE
     Dosage: 100 MG EVERY DAY PO
     Route: 048
     Dates: start: 20090811, end: 20090819

REACTIONS (5)
  - ASTHENIA [None]
  - DECREASED APPETITE [None]
  - DIZZINESS [None]
  - NAUSEA [None]
  - VOMITING [None]
